FAERS Safety Report 5604301-0 (Version None)
Quarter: 2008Q1

REPORT INFORMATION
  Report Type: 
  Country: None (occurrence: None)
  Receive Date: 20080128
  Receipt Date: 20080115
  Transmission Date: 20080703
  Serious: Yes (Hospitalization)
  Sender: FDA-Public Use
  Company Number: US-ELI_LILLY_AND_COMPANY-US200801002973

PATIENT
  Sex: Female

DRUGS (12)
  1. FORTEO [Suspect]
     Indication: OSTEOPOROSIS
     Dates: start: 20050601
  2. NEXIUM [Concomitant]
     Indication: GASTROOESOPHAGEAL REFLUX DISEASE
  3. CATAPRES /USA/ [Concomitant]
     Indication: HYPERTENSION
  4. CALCIUM CITRATE [Concomitant]
     Indication: SUPPLEMENTATION THERAPY
  5. MOBIC [Concomitant]
     Indication: ARTHRITIS
  6. VITAMIN D [Concomitant]
     Indication: SUPPLEMENTATION THERAPY
  7. XANAX [Concomitant]
     Dosage: 1/2 TO 1 TABLET
  8. PERCOCET [Concomitant]
     Dosage: UNK, AS NEEDED
  9. METAMUCIL [Concomitant]
  10. MIRALAX [Concomitant]
  11. MACRODANTIN [Concomitant]
     Indication: CYSTITIS
     Dates: start: 20070101
  12. TESTOSTERONE [Concomitant]
     Dosage: UNK, 2/D

REACTIONS (7)
  - ABDOMINAL PAIN UPPER [None]
  - BACK INJURY [None]
  - BACK PAIN [None]
  - DEPRESSION [None]
  - INJURY [None]
  - JOINT INJURY [None]
  - MENTAL DISORDER [None]
